FAERS Safety Report 7424891-5 (Version None)
Quarter: 2011Q2

REPORT INFORMATION
  Report Type: 
  Country: None (occurrence: None)
  Receive Date: 20110419
  Receipt Date: 20110414
  Transmission Date: 20111010
  Serious: Yes (Hospitalization, Other)
  Sender: FDA-Public Use
  Company Number: US-B.I. PHARMACEUTICALS,INC./RIDGEFIELD-2011-BP-10818BP

PATIENT
  Age: 47 Year
  Sex: Male

DRUGS (2)
  1. PRADAXA [Suspect]
     Indication: THROMBOSIS PROPHYLAXIS
  2. COUMADIN [Concomitant]
     Indication: THROMBOSIS PROPHYLAXIS
     Dates: end: 20101201

REACTIONS (7)
  - DYSPNOEA [None]
  - CHEST PAIN [None]
  - LOSS OF CONSCIOUSNESS [None]
  - DIZZINESS [None]
  - PULMONARY EMBOLISM [None]
  - HYPERTENSION [None]
  - HEART RATE INCREASED [None]
